FAERS Safety Report 9779909 (Version 1)
Quarter: 2013Q4

REPORT INFORMATION
  Report Type: Spontaneous
  Country: US (occurrence: US)
  Receive Date: 20131223
  Receipt Date: 20131223
  Transmission Date: 20140711
  Serious: Yes (Other)
  Sender: FDA-Public Use
  Company Number: US-PFIZER INC-2013365482

PATIENT
  Age: 9 Year
  Sex: Male

DRUGS (1)
  1. QUILLIVANT XR [Suspect]
     Dosage: 8 ML, UNK

REACTIONS (1)
  - Melaena [Unknown]
